FAERS Safety Report 15406674 (Version 2)
Quarter: 2018Q4

REPORT INFORMATION
  Report Type: Other
  Country: IT (occurrence: IT)
  Receive Date: 20180920
  Receipt Date: 20181005
  Transmission Date: 20190204
  Serious: Yes (Hospitalization)
  Sender: FDA-Public Use
  Company Number: IT-MACLEODS PHARMACEUTICALS US LTD-MAC2018016603

PATIENT

DRUGS (1)
  1. LEVOFLOXACIN. [Suspect]
     Active Substance: LEVOFLOXACIN
     Indication: PRODUCT USED FOR UNKNOWN INDICATION
     Dosage: 1500 MILLIGRAM, QD, MEDICATION ERROR, MISUSE
     Route: 048
     Dates: start: 20180724, end: 20180726

REACTIONS (2)
  - Paraesthesia [Unknown]
  - Medication error [Unknown]

NARRATIVE: CASE EVENT DATE: 20180724
